FAERS Safety Report 20130914 (Version 2)
Quarter: 2022Q1

REPORT INFORMATION
  Report Type: Spontaneous
  Country: US (occurrence: US)
  Receive Date: 20211130
  Receipt Date: 20220113
  Transmission Date: 20220423
  Serious: No
  Sender: FDA-Public Use
  Company Number: US-ELI_LILLY_AND_COMPANY-US202111012595

PATIENT
  Sex: Female

DRUGS (3)
  1. TRULICITY [Suspect]
     Active Substance: DULAGLUTIDE
     Indication: Type 2 diabetes mellitus
     Dosage: 0.75 MG, UNKNOWN
     Route: 058
     Dates: start: 202110
  2. TRULICITY [Suspect]
     Active Substance: DULAGLUTIDE
     Indication: Type 2 diabetes mellitus
     Dosage: 0.75 MG, UNKNOWN
     Route: 058
     Dates: start: 202110
  3. TRULICITY [Suspect]
     Active Substance: DULAGLUTIDE
     Dosage: 0.75 MG, UNKNOWN
     Route: 058
     Dates: end: 202111

REACTIONS (14)
  - Mood swings [Unknown]
  - Pollakiuria [Unknown]
  - Fall [Unknown]
  - Nervousness [Unknown]
  - Feeding disorder [Unknown]
  - Defaecation disorder [Unknown]
  - Weight decreased [Unknown]
  - Blood glucose increased [Unknown]
  - Nausea [Unknown]
  - Constipation [Unknown]
  - Decreased appetite [Unknown]
  - Injection site pain [Unknown]
  - Product dose omission issue [Unknown]
  - Drug ineffective [Unknown]
